FAERS Safety Report 17715548 (Version 1)
Quarter: 2020Q2

REPORT INFORMATION
  Report Type: Spontaneous
  Country: ES (occurrence: ES)
  Receive Date: 20200427
  Receipt Date: 20200427
  Transmission Date: 20200714
  Serious: Yes (Hospitalization)
  Sender: FDA-Public Use
  Company Number: ES-TEVA-2020-ES-1226981

PATIENT
  Age: 39 Year
  Sex: Female

DRUGS (3)
  1. IBUPROFENO (1769A) [Suspect]
     Active Substance: IBUPROFEN
     Dosage: 1800 MILLIGRAM DAILY; 600MG EVERY 8 HOURS
     Route: 048
     Dates: start: 20190206, end: 20190210
  2. LIDOCAINA B. BRAUN 10 MG/ML SOLUCION INYECTABLE, 1 AMPOLLA DE 10 ML M [Suspect]
     Active Substance: LIDOCAINE
     Dates: start: 20180709, end: 20180709
  3. MEPIVACAINA (1909A) [Suspect]
     Active Substance: MEPIVACAINE HYDROCHLORIDE
     Dosage: SP
     Dates: start: 20180625, end: 20180625

REACTIONS (2)
  - Hepatic failure [Recovered/Resolved]
  - Hepatitis acute [Recovered/Resolved]

NARRATIVE: CASE EVENT DATE: 20180720
